FAERS Safety Report 10574987 (Version 1)
Quarter: 2014Q4

REPORT INFORMATION
  Report Type: Spontaneous
  Country: US (occurrence: US)
  Receive Date: 20141111
  Receipt Date: 20141111
  Transmission Date: 20150529
  Serious: Yes (Other)
  Sender: FDA-Public Use
  Company Number: US-MYLANLABS-2014M1009344

PATIENT

DRUGS (1)
  1. LEVOTHYROXINE [Suspect]
     Active Substance: LEVOTHYROXINE
     Dosage: UNK

REACTIONS (2)
  - Stevens-Johnson syndrome [Not Recovered/Not Resolved]
  - Hypersensitivity [Not Recovered/Not Resolved]
